FAERS Safety Report 7932668-7 (Version None)
Quarter: 2011Q4

REPORT INFORMATION
  Report Type: 
  Country: None (occurrence: None)
  Receive Date: 20111122
  Receipt Date: 20111108
  Transmission Date: 20120403
  Serious: Yes (Death, Hospitalization, Other)
  Sender: FDA-Public Use
  Company Number: GB-PAR PHARMACEUTICAL, INC-2011SCPR003393

PATIENT

DRUGS (3)
  1. DIAZEPAM [Suspect]
     Indication: PRODUCT USED FOR UNKNOWN INDICATION
     Dosage: 60 MG, UNKNOWN
     Route: 048
  2. DICLOFENAC SODIUM [Suspect]
     Indication: PRODUCT USED FOR UNKNOWN INDICATION
     Dosage: 600 MG, UNKNOWN
     Route: 048
  3. FERROUS SULFATE TAB [Suspect]
     Indication: PRODUCT USED FOR UNKNOWN INDICATION
     Dosage: MORE THAN 6 GM
     Route: 048

REACTIONS (18)
  - MULTIPLE DRUG OVERDOSE [None]
  - BRAIN DEATH [None]
  - SHOCK [None]
  - HAEMORRHAGE [None]
  - ASPERGILLOSIS [None]
  - PERFORATION BILE DUCT [None]
  - COMPLICATIONS OF TRANSPLANTED LIVER [None]
  - SEPTIC SHOCK [None]
  - RENAL FAILURE [None]
  - HEPATIC FAILURE [None]
  - HEPATIC ENCEPHALOPATHY [None]
  - RIGHT VENTRICULAR DYSFUNCTION [None]
  - HEPATIC NECROSIS [None]
  - COMPLETED SUICIDE [None]
  - ACUTE RESPIRATORY DISTRESS SYNDROME [None]
  - PULMONARY HYPERTENSION [None]
  - DEATH [None]
  - INTRACRANIAL PRESSURE INCREASED [None]
